FAERS Safety Report 8821499 (Version 1)
Quarter: 2012Q4

REPORT INFORMATION
  Report Type: 
  Country: NO (occurrence: NO)
  Receive Date: 20121002
  Receipt Date: 20121002
  Transmission Date: 20130627
  Serious: Yes (Disabling, Other)
  Sender: FDA-Public Use
  Company Number: CHPA2012NO020698

PATIENT
  Sex: Female

DRUGS (1)
  1. OTRIVIN [Suspect]
     Indication: NASOPHARYNGITIS
     Dosage: UNK DF, Q2H
     Route: 045
     Dates: end: 20120924

REACTIONS (6)
  - Anosmia [Recovered/Resolved]
  - Ageusia [Recovered/Resolved]
  - Drug dependence [Recovered/Resolved]
  - Overdose [Unknown]
  - Incorrect drug administration duration [Unknown]
  - Drug ineffective [Unknown]
